FAERS Safety Report 7542152-0 (Version None)
Quarter: 2011Q2

REPORT INFORMATION
  Report Type: 
  Country: None (occurrence: None)
  Receive Date: 20110613
  Receipt Date: 20110531
  Transmission Date: 20111010
  Serious: Yes (Other)
  Sender: FDA-Public Use
  Company Number: RU-AMGEN-RUSCT2011028126

PATIENT
  Weight: 63.3 kg

DRUGS (3)
  1. DENOSUMAB [Suspect]
     Indication: METASTASES TO BONE
     Dosage: UNK
     Dates: end: 20100120
  2. CALCIUM CARBONATE [Concomitant]
     Dosage: UNK UNK, QD
     Route: 048
     Dates: start: 20071101
  3. VITAMIN D [Concomitant]
     Dosage: UNK UNK, QD
     Route: 048
     Dates: start: 20071101

REACTIONS (1)
  - PAIN IN JAW [None]
